FAERS Safety Report 17264805 (Version 2)
Quarter: 2020Q1

REPORT INFORMATION
  Report Type: Spontaneous
  Country: US (occurrence: US)
  Receive Date: 20200113
  Receipt Date: 20200316
  Transmission Date: 20200409
  Serious: No
  Sender: FDA-Public Use
  Company Number: US-ELI_LILLY_AND_COMPANY-US202001004359

PATIENT
  Sex: Female

DRUGS (1)
  1. EMGALITY [Suspect]
     Active Substance: GALCANEZUMAB-GNLM
     Indication: MIGRAINE
     Dosage: 1 UNK, UNKNOWN
     Route: 065
     Dates: start: 20191023

REACTIONS (4)
  - Back pain [Unknown]
  - Neck pain [Unknown]
  - Head injury [Unknown]
  - Trigeminal neuralgia [Unknown]
